FAERS Safety Report 6244546-2 (Version None)
Quarter: 2009Q2

REPORT INFORMATION
  Report Type: 
  Country: None (occurrence: None)
  Receive Date: 20090623
  Receipt Date: 20090612
  Transmission Date: 20091009
  Serious: Yes (Death)
  Sender: FDA-Public Use
  Company Number: GXKR2009JP02179

PATIENT
  Age: 70 Year
  Sex: Male

DRUGS (10)
  1. RIFAMPICIN [Suspect]
     Indication: PULMONARY TUBERCULOSIS
     Dosage: 450 MG, QD, ORAL
     Route: 048
     Dates: start: 20090114, end: 20090121
  2. ISONIAZID [Concomitant]
  3. PYRAZINAMIDE [Concomitant]
  4. LEVOFLOXACIN [Concomitant]
  5. ADONA (CARBAZOCHROME SODIUM SULFONATE) TABLET [Concomitant]
  6. TRANSAMIN (TRANEXAMIC ACID) [Concomitant]
  7. SIGMART (NICORANDIL) TABLET [Concomitant]
  8. BROTIZOLAM (BROTIZOLAM) TABLET [Concomitant]
  9. NITRAZEPAM [Concomitant]
  10. SENNOSIDE (SENNOSIDE A+B CALCIUM) TABLET [Concomitant]

REACTIONS (8)
  - ASTERIXIS [None]
  - DEPRESSED LEVEL OF CONSCIOUSNESS [None]
  - DISSEMINATED INTRAVASCULAR COAGULATION [None]
  - ENCEPHALOPATHY [None]
  - FACIAL SPASM [None]
  - HAEMORRHAGE [None]
  - HEPATITIS FULMINANT [None]
  - HYPOGLYCAEMIA [None]
